FAERS Safety Report 22256396 (Version 1)
Quarter: 2023Q2

REPORT INFORMATION
  Report Type: Spontaneous
  Country: FR (occurrence: FR)
  Receive Date: 20230426
  Receipt Date: 20230426
  Transmission Date: 20230721
  Serious: Yes (Other)
  Sender: FDA-Public Use
  Company Number: FR-ALXN-A202103124

PATIENT
  Age: 41 Year
  Sex: Female

DRUGS (3)
  1. SOLIRIS [Suspect]
     Active Substance: ECULIZUMAB
     Indication: Off label use
     Dosage: 1200 MG,FIFTH WEEK, THEN EVERY2 WEEKS
     Route: 065
     Dates: start: 20210124
  2. SOLIRIS [Suspect]
     Active Substance: ECULIZUMAB
     Indication: Myelin oligodendrocyte glycoprotein antibody-associated disease
     Dosage: 900 MG, QW FOR FIRST FOUR WEEKS
     Route: 065
     Dates: start: 20161227, end: 20170123
  3. IMUREL                             /00001501/ [Concomitant]
     Indication: Product used for unknown indication
     Dosage: UNK
     Route: 065

REACTIONS (3)
  - Myelin oligodendrocyte glycoprotein antibody-associated disease [Unknown]
  - Condition aggravated [Unknown]
  - Off label use [Unknown]

NARRATIVE: CASE EVENT DATE: 20161227
